FAERS Safety Report 4481859-9 (Version None)
Quarter: 2004Q3

REPORT INFORMATION
  Report Type: 
  Country: None (occurrence: None)
  Receive Date: 20040921
  Receipt Date: 20030826
  Transmission Date: 20050211
  Serious: Yes (Hospitalization)
  Sender: FDA-Public Use
  Company Number: 163-20785-03010041(1)

PATIENT
  Age: 60 Year
  Sex: Female

DRUGS (3)
  1. THALOMID [Suspect]
     Indication: MULTIPLE MYELOMA
     Dosage: 200 MG, DAILY, ORAL; SEE IMAGE
     Route: 048
     Dates: start: 20021123, end: 20030501
  2. THALOMID [Suspect]
     Indication: MULTIPLE MYELOMA
     Dosage: 200 MG, DAILY, ORAL; SEE IMAGE
     Route: 048
     Dates: start: 20030501
  3. SYNTHROID [Concomitant]

REACTIONS (5)
  - HEART RATE DECREASED [None]
  - HYPOTHYROIDISM [None]
  - INFECTION [None]
  - THROMBOSIS [None]
  - WHITE BLOOD CELL COUNT DECREASED [None]
